FAERS Safety Report 5384861-8 (Version None)
Quarter: 2007Q3

REPORT INFORMATION
  Report Type: 
  Country: None (occurrence: None)
  Receive Date: 20070706
  Receipt Date: 20070417
  Transmission Date: 20080115
  Serious: No
  Sender: FDA-Public Use
  Company Number: PHEH2007US05704

PATIENT
  Sex: Male

DRUGS (2)
  1. TEKTURNA [Suspect]
     Dosage: 150 MG;QD;ORAL
     Route: 048
     Dates: start: 20070404, end: 20070406
  2. COREG [Concomitant]

REACTIONS (3)
  - AGITATION [None]
  - ANXIETY [None]
  - NERVOUSNESS [None]
